FAERS Safety Report 4384859-2 (Version None)
Quarter: 2004Q2

REPORT INFORMATION
  Report Type: 
  Country: None (occurrence: None)
  Receive Date: 20040621
  Receipt Date: 20040604
  Transmission Date: 20050107
  Serious: Yes (Life-Threatening, Hospitalization)
  Sender: FDA-Public Use
  Company Number: 2004-DE-03215DE

PATIENT
  Age: 65 Year
  Sex: Female

DRUGS (4)
  1. SIFROL          (PRAMIPEXOLE DIHYDROCHLORIDE) [Suspect]
     Dosage: 15.5 MG (0.18 MG, 1 X 86 TABLETS) PO
     Route: 048
  2. ENALAPRIL MALEATE [Suspect]
     Dosage: 380 MG (10 MG, 1 X 38 TABLETS) PO
     Route: 048
  3. ZOLPIDEM (ZOLPIDEM) [Suspect]
     Dosage: PO
     Route: 048
  4. ALCOHOL (ETHANOL) [Suspect]
     Dosage: PO
     Route: 048

REACTIONS (10)
  - ALCOHOL USE [None]
  - BLOOD CREATINE PHOSPHOKINASE INCREASED [None]
  - BRADYCARDIA [None]
  - COMA [None]
  - DEHYDRATION [None]
  - DEPRESSION [None]
  - HYPOTHERMIA [None]
  - INTESTINAL HYPOMOTILITY [None]
  - SHOCK [None]
  - SUICIDE ATTEMPT [None]
